FAERS Safety Report 7834363-1 (Version None)
Quarter: 2011Q4

REPORT INFORMATION
  Report Type: 
  Country: None (occurrence: None)
  Receive Date: 20111024
  Receipt Date: 20111018
  Transmission Date: 20120403
  Serious: Yes (Death)
  Sender: FDA-Public Use
  Company Number: PHHY2011HN92337

PATIENT
  Age: 92 Year
  Sex: Female

DRUGS (1)
  1. ZOLEDRONOC ACID [Suspect]
     Indication: HIP FRACTURE
     Dosage: 5 MG, UNK
     Route: 042

REACTIONS (1)
  - DEATH [None]
